FAERS Safety Report 18666290 (Version 1)
Quarter: 2020Q4

REPORT INFORMATION
  Report Type: Report from Study
  Country: MX (occurrence: MX)
  Receive Date: 20201226
  Receipt Date: 20201226
  Transmission Date: 20210114
  Serious: Yes (Other)
  Sender: FDA-Public Use
  Company Number: NVSC2020MX340282

PATIENT
  Sex: Male
  Weight: 78 kg

DRUGS (2)
  1. TEGRETOL [Suspect]
     Active Substance: CARBAMAZEPINE
     Dosage: 1.5 DF, BID (IN THE MORNING AND AT NIGHT, STARTED AND AND HALF YEAR AGO APPROXIMATELY)
     Route: 048
  2. TEGRETOL [Suspect]
     Active Substance: CARBAMAZEPINE
     Indication: BRAIN HYPOXIA
     Dosage: 1 DF, QD
     Route: 048
     Dates: start: 2000

REACTIONS (2)
  - Epilepsy [Not Recovered/Not Resolved]
  - Brain hypoxia [Unknown]
